FAERS Safety Report 11537661 (Version 7)
Quarter: 2017Q1

REPORT INFORMATION
  Report Type: Report from Study
  Country: FR (occurrence: FR)
  Receive Date: 20150922
  Receipt Date: 20170117
  Transmission Date: 20170428
  Serious: Yes (Hospitalization, Other)
  Sender: FDA-Public Use
  Company Number: FR-INCYTE CORPORATION-2015IN003395

PATIENT
  Age: 55 Year
  Sex: Male

DRUGS (2)
  1. JAKAVI [Suspect]
     Active Substance: RUXOLITINIB
     Dosage: 40 MG, QD
     Route: 048
     Dates: start: 20140922
  2. JAKAVI [Suspect]
     Active Substance: RUXOLITINIB
     Indication: MYELOFIBROSIS
     Dosage: 40 MG, QD
     Route: 048
     Dates: start: 20121120, end: 20140913

REACTIONS (11)
  - Prostate cancer [Recovered/Resolved]
  - Genital herpes [Recovered/Resolved]
  - Seminal vesicle atrophy [Unknown]
  - Genital herpes [Recovered/Resolved]
  - Gout [Recovered/Resolved]
  - Herpes zoster [Unknown]
  - Granuloma [Unknown]
  - Prostatitis Escherichia coli [Recovered/Resolved]
  - Septic shock [Recovered/Resolved]
  - Adenocarcinoma [Recovered/Resolved]
  - Metastases to bone [Unknown]

NARRATIVE: CASE EVENT DATE: 20140911
